FAERS Safety Report 11083668 (Version 1)
Quarter: 2015Q2

REPORT INFORMATION
  Report Type: Spontaneous
  Country: US (occurrence: US)
  Receive Date: 20150501
  Receipt Date: 20150501
  Transmission Date: 20150821
  Serious: Yes (Other)
  Sender: FDA-Public Use
  Company Number: US-PFIZER INC-2015145854

PATIENT
  Age: 68 Year
  Sex: Male
  Weight: 138.32 kg

DRUGS (1)
  1. VIAGRA [Suspect]
     Active Substance: SILDENAFIL CITRATE
     Dosage: 100 MG, 1X/DAY
     Route: 048

REACTIONS (3)
  - Arthropathy [Unknown]
  - Drug interaction [Unknown]
  - Drug ineffective [Unknown]
